FAERS Safety Report 19728272 (Version 4)
Quarter: 2021Q3

REPORT INFORMATION
  Report Type: Report from Study
  Country: JP (occurrence: JP)
  Receive Date: 20210820
  Receipt Date: 20210917
  Transmission Date: 20211014
  Serious: Yes (Hospitalization)
  Sender: FDA-Public Use
  Company Number: JP-SERVIER-S21008845

PATIENT

DRUGS (26)
  1. AZACITIDINE. [Suspect]
     Active Substance: AZACITIDINE
     Dosage: 135 MG, QD
     Route: 058
     Dates: start: 20210326, end: 20210419
  2. TN UNSPECIFIED [Concomitant]
     Indication: HYPERURICAEMIA
     Dosage: 40 MG, QD
     Route: 048
     Dates: start: 20210222
  3. TN UNSPECIFIED [Concomitant]
     Dosage: 10 MG, QD
     Route: 048
     Dates: start: 20210822
  4. AZACITIDINE. [Suspect]
     Active Substance: AZACITIDINE
     Dosage: 137 MG, QD
     Route: 058
     Dates: start: 20200601, end: 20200609
  5. AZACITIDINE. [Suspect]
     Active Substance: AZACITIDINE
     Dosage: 136 MG, QD
     Route: 058
     Dates: start: 20200803, end: 20200811
  6. AZACITIDINE. [Suspect]
     Active Substance: AZACITIDINE
     Dosage: 133 MG, QD
     Route: 058
     Dates: start: 20210511, end: 20210517
  7. AZACITIDINE. [Suspect]
     Active Substance: AZACITIDINE
     Dosage: 134 MG, QD
     Route: 058
     Dates: start: 20201124, end: 20201130
  8. TN UNSPECIFIED [Concomitant]
     Indication: GASTROOESOPHAGEAL REFLUX DISEASE
     Dosage: 20 MG, QD
     Route: 048
  9. TN UNSPECIFIED [Concomitant]
     Indication: RENAL DISORDER
     Dosage: 500 MG, TID
     Route: 048
     Dates: start: 20210610, end: 20210817
  10. COVID?19 VACCINE [Concomitant]
     Indication: COVID-19 PROPHYLAXIS
     Dosage: 0.3 ML, ONE DOSE
     Route: 030
     Dates: start: 20210718, end: 20210718
  11. IVOSIDENIB [Suspect]
     Active Substance: IVOSIDENIB
     Indication: ACUTE MYELOID LEUKAEMIA
     Dosage: 500 MG, QD
     Route: 048
     Dates: start: 20200420, end: 20200423
  12. AZACITIDINE. [Suspect]
     Active Substance: AZACITIDINE
     Dosage: 133 MG, QD
     Route: 058
     Dates: start: 20200908, end: 20201105
  13. TN UNSPECIFIED [Concomitant]
     Indication: HYPERTENSION
     Dosage: 10 MG, QD
     Route: 048
     Dates: start: 20210821, end: 20210825
  14. AZACITIDINE. [Suspect]
     Active Substance: AZACITIDINE
     Dosage: 134 MG, QD
     Route: 058
     Dates: start: 20200629, end: 20200707
  15. TN UNSPECIFIED [Concomitant]
     Dosage: 500 MG, QD
     Route: 048
     Dates: start: 20210818
  16. IVOSIDENIB [Suspect]
     Active Substance: IVOSIDENIB
     Dosage: 250 MG, QD
     Route: 048
     Dates: start: 20200428, end: 20200820
  17. AZACITIDINE. [Suspect]
     Active Substance: AZACITIDINE
     Indication: ACUTE MYELOID LEUKAEMIA
     Dosage: 142 MG, QD
     Route: 058
     Dates: start: 20200420, end: 20200428
  18. AZACITIDINE. [Suspect]
     Active Substance: AZACITIDINE
     Dosage: 137 MG, QD
     Route: 058
     Dates: start: 20210216, end: 20210222
  19. TN UNSPECIFIED [Concomitant]
     Indication: CATARACT
     Dosage: 0.5 ML, BID
     Route: 047
  20. TN UNSPECIFIED [Concomitant]
     Indication: DYSLIPIDAEMIA
     Dosage: 2.5 MG, QD
     Route: 048
  21. TN UNSPECIFIED [Concomitant]
     Dosage: 20 MG, QD
     Route: 048
     Dates: start: 20210830, end: 20210831
  22. TN UNSPECIFIED [Concomitant]
     Indication: RENAL DISORDER
     Dosage: 300, OTHER, MONTLY
     Route: 058
     Dates: start: 20210517
  23. AZACITIDINE. [Suspect]
     Active Substance: AZACITIDINE
     Dosage: 136 MG, QD
     Route: 058
     Dates: start: 20201221, end: 20201227
  24. AZACITIDINE. [Suspect]
     Active Substance: AZACITIDINE
     Dosage: 138 MG, QD
     Route: 058
     Dates: start: 20210118, end: 20210124
  25. AZACITIDINE. [Suspect]
     Active Substance: AZACITIDINE
     Dosage: 134 MG, QD
     Route: 058
     Dates: start: 20210608, end: 20210614
  26. TN UNSPECIFIED [Concomitant]
     Indication: HYPERTENSION
     Dosage: 40 MG, BID
     Route: 048
     Dates: start: 20210223, end: 20210829

REACTIONS (2)
  - Renal disorder [Recovered/Resolved]
  - Renal disorder [Recovered/Resolved]

NARRATIVE: CASE EVENT DATE: 20210805
